FAERS Safety Report 9580132 (Version 1)
Quarter: 2013Q3

REPORT INFORMATION
  Report Type: Spontaneous
  Country: IT (occurrence: None)
  Receive Date: 20130930
  Receipt Date: 20130930
  Transmission Date: 20140515
  Serious: Yes (Hospitalization)
  Sender: FDA-Public Use
  Company Number: AUR-APL-2013-07891

PATIENT
  Age: 58 Year
  Sex: Female

DRUGS (5)
  1. AMOXICILLIN [Suspect]
     Indication: BACTERIAL INFECTION
     Dosage: 2 DOSAGE FORMS, 1 D, ORAL
     Route: 048
     Dates: start: 20130421, end: 20130424
  2. PANTORC ( PANTOPRAZOLE SODIUM SESQUIHYDRATE) [Concomitant]
  3. CONGESCOR ( BISOPROLOL) [Concomitant]
  4. BENTELAN ( BETAMETHASONE SODIUM PHOSPHATE) [Concomitant]
  5. ASPIRINA ( ACETYLSALICYLIC ACID) [Concomitant]

REACTIONS (3)
  - Abdominal pain [None]
  - Diarrhoea [None]
  - Vomiting [None]
